FAERS Safety Report 19352977 (Version 1)
Quarter: 2021Q2

REPORT INFORMATION
  Report Type: Spontaneous
  Country: US (occurrence: US)
  Receive Date: 20210601
  Receipt Date: 20210601
  Transmission Date: 20210717
  Serious: No
  Sender: FDA-Public Use
  Company Number: US-IGSA-BIG0014548

PATIENT
  Age: 15 Year
  Sex: Male
  Weight: 50.1 kg

DRUGS (4)
  1. ACETAMINOPHEN. [Concomitant]
     Active Substance: ACETAMINOPHEN
     Indication: PREMEDICATION
     Dosage: 500 MILLIGRAM
     Route: 048
  2. GAMUNEX?C [Suspect]
     Active Substance: HUMAN IMMUNOGLOBULIN G
     Dosage: 20 GRAM, Q.4WK.
     Dates: start: 20180330
  3. DIPHENHYDRAMINE. [Concomitant]
     Active Substance: DIPHENHYDRAMINE
     Indication: PREMEDICATION
     Dosage: 25 MILLIGRAM
     Route: 048
  4. GAMUNEX?C [Suspect]
     Active Substance: HUMAN IMMUNOGLOBULIN G
     Indication: IMMUNODEFICIENCY CONGENITAL
     Dosage: 20 GRAM, Q.4WK.
     Route: 042
     Dates: start: 20210426, end: 20210426

REACTIONS (1)
  - Urticaria [Recovered/Resolved]

NARRATIVE: CASE EVENT DATE: 20210426
